FAERS Safety Report 7631705-7 (Version None)
Quarter: 2011Q3

REPORT INFORMATION
  Report Type: 
  Country: None (occurrence: None)
  Receive Date: 20110725
  Receipt Date: 20110712
  Transmission Date: 20111222
  Serious: Yes (Other)
  Sender: FDA-Public Use
  Company Number: US-ELI_LILLY_AND_COMPANY-US201107004969

PATIENT
  Age: 48 Year
  Sex: Male

DRUGS (23)
  1. TIZANIDINE HCL [Concomitant]
  2. OXYCONTIN [Concomitant]
  3. FLUTICASONE PROPIONATE [Concomitant]
  4. FOLIC ACID [Concomitant]
  5. LEVOTHYROXINE SODIUM [Concomitant]
  6. LIVALO [Concomitant]
  7. QVAR 40 [Concomitant]
  8. ZANTAC [Concomitant]
  9. ALBUTEROL SULFATE AUTOHALER [Concomitant]
  10. LASIX [Concomitant]
  11. HYDROCORTISONE [Concomitant]
  12. DEXOMON [Concomitant]
  13. TRAZODONE HCL [Concomitant]
  14. NYSTATIN [Concomitant]
  15. PULMICORT [Concomitant]
  16. SYMBICORT [Concomitant]
  17. VITAMIN D [Concomitant]
  18. CLOMIPHENE CITRATE [Concomitant]
  19. FORTEO [Suspect]
     Indication: OSTEOPOROSIS
     Dosage: 20 UG, QD
     Dates: start: 20101001
  20. DILTIAZEM [Concomitant]
  21. SINGULAIR [Concomitant]
  22. VITAMIN B-12 [Concomitant]
  23. MUCINEX [Concomitant]

REACTIONS (4)
  - PELVIC FRACTURE [None]
  - SPINAL COMPRESSION FRACTURE [None]
  - BONE DISORDER [None]
  - PAIN [None]
